FAERS Safety Report 4794987-5 (Version None)
Quarter: 2005Q4

REPORT INFORMATION
  Report Type: 
  Country: None (occurrence: None)
  Receive Date: 20051007
  Receipt Date: 20051007
  Transmission Date: 20060501
  Serious: Yes (Other)
  Sender: FDA-Public Use
  Company Number: None

PATIENT
  Sex: Female
  Weight: 13.1 kg

DRUGS (1)
  1. RITUXIMAB - GENENTECH [Suspect]
     Indication: OPSOCLONUS MYOCLONUS
     Dosage: 214MG/WK1YX4/IV PORT
     Route: 042
     Dates: start: 20050901

REACTIONS (4)
  - BLOOD CULTURE POSITIVE [None]
  - CATHETER RELATED INFECTION [None]
  - PYREXIA [None]
  - STAPHYLOCOCCAL INFECTION [None]
